FAERS Safety Report 8614560-8 (Version None)
Quarter: 2012Q3

REPORT INFORMATION
  Report Type: 
  Country: None (occurrence: None)
  Receive Date: 20120823
  Receipt Date: 20120821
  Transmission Date: 20120928
  Serious: Yes (Other)
  Sender: FDA-Public Use
  Company Number: PHFR2011IE03891

PATIENT
  Sex: Female

DRUGS (7)
  1. PRAVASTATIN [Concomitant]
     Indication: HYPERLIPIDAEMIA
     Dosage: 40 MG, UNK
     Route: 048
     Dates: start: 20080912
  2. OMEPRAZOLE (PRISOLEC) [Concomitant]
     Indication: GASTROOESOPHAGEAL REFLUX DISEASE
     Dosage: 40 MG, UNK
     Route: 048
     Dates: start: 20080912
  3. CLOZARIL [Suspect]
     Indication: SCHIZOPHRENIA
     Dosage: UNK UKN, UNK
     Route: 048
     Dates: start: 20080814
  4. GALFER [Concomitant]
     Indication: ANAEMIA
     Dosage: 10 ML, UNK
     Route: 048
     Dates: start: 20050912
  5. BISOPROLOL FUMARATE [Concomitant]
     Indication: HYPERTENSION
     Dosage: 2.5 MG, UNK
     Route: 048
     Dates: start: 20080912
  6. CLOZARIL [Suspect]
     Dosage: 375 MG, UNK
     Route: 048
  7. CLOZARIL [Suspect]
     Dosage: 400 MG, UNK
     Route: 048
     Dates: start: 20110530

REACTIONS (2)
  - EOSINOPHIL COUNT INCREASED [None]
  - DIFFERENTIAL WHITE BLOOD CELL COUNT ABNORMAL [None]
